FAERS Safety Report 9101949 (Version 1)
Quarter: 2013Q1

REPORT INFORMATION
  Report Type: Spontaneous
  Country: US (occurrence: None)
  Receive Date: 20130220
  Receipt Date: 20130220
  Transmission Date: 20140127
  Serious: No
  Sender: FDA-Public Use
  Company Number: None

PATIENT
  Age: 57 Year
  Sex: Female

DRUGS (2)
  1. PEGASYS [Suspect]
     Dosage: 180MCG  QW  SQ?FROM  102312  TO  PRESENT
     Route: 058
     Dates: start: 20121023
  2. RIBAVIRIN TABLET 200MG ZYDUS [Suspect]
     Indication: HEPATITIS C
     Dosage: 1000 MG  DAILY  PO?FROM  102312  TO  PRESENT
     Route: 048
     Dates: start: 20121023

REACTIONS (3)
  - Hypoaesthesia [None]
  - Skin hypertrophy [None]
  - Pruritus [None]
